FAERS Safety Report 25848887 (Version 1)
Quarter: 2025Q3

REPORT INFORMATION
  Report Type: Report from Study
  Country: CN (occurrence: CN)
  Receive Date: 20250925
  Receipt Date: 20250925
  Transmission Date: 20251021
  Serious: Yes (Hospitalization, Other)
  Sender: VERITY PHARMACEUTICALS INC.
  Company Number: CN-VER-202500043

PATIENT
  Sex: Female

DRUGS (2)
  1. TRIPTORELIN [Suspect]
     Active Substance: TRIPTORELIN
     Indication: Organ preservation
     Route: 065
  2. TRIPTORELIN [Suspect]
     Active Substance: TRIPTORELIN
     Indication: Intravenous leiomyomatosis
     Route: 065

REACTIONS (3)
  - Disease progression [Unknown]
  - Post procedural complication [Unknown]
  - Off label use [Unknown]
